APPROVED DRUG PRODUCT: FLUVOXAMINE MALEATE
Active Ingredient: FLUVOXAMINE MALEATE
Strength: 100MG
Dosage Form/Route: CAPSULE, EXTENDED RELEASE;ORAL
Application: A219055 | Product #001 | TE Code: AB
Applicant: AJANTA PHARMA LTD
Approved: Oct 17, 2024 | RLD: No | RS: No | Type: RX